FAERS Safety Report 9197846 (Version 1)
Quarter: 2013Q1

REPORT INFORMATION
  Report Type: Spontaneous
  Country: US (occurrence: US)
  Receive Date: 20130328
  Receipt Date: 20130328
  Transmission Date: 20140127
  Serious: No
  Sender: FDA-Public Use
  Company Number: US-ASTRAZENECA-2013SE18704

PATIENT
  Age: 67 Year
  Sex: Female
  Weight: 52.2 kg

DRUGS (1)
  1. SYMBICORT [Suspect]
     Indication: CHRONIC OBSTRUCTIVE PULMONARY DISEASE
     Dosage: 160/4.5  1 PUFF TWO TIMES A DAY
     Route: 055
     Dates: start: 201301

REACTIONS (8)
  - Paraesthesia [Unknown]
  - Dry throat [Unknown]
  - Abdominal pain upper [Unknown]
  - Drug intolerance [Unknown]
  - Headache [Unknown]
  - Palpitations [Unknown]
  - Tremor [Unknown]
  - Off label use [Unknown]
